FAERS Safety Report 5168465-8 (Version None)
Quarter: 2006Q4

REPORT INFORMATION
  Report Type: 
  Country: None (occurrence: None)
  Receive Date: 20061208
  Receipt Date: 20060720
  Transmission Date: 20070319
  Serious: Yes (Other)
  Sender: FDA-Public Use
  Company Number: US-AMGEN-US187002

PATIENT
  Age: 12 Year
  Sex: Male

DRUGS (5)
  1. KINERET [Suspect]
     Indication: PRE-EXISTING DISEASE
     Dates: start: 20040527
  2. PREDNISONE TAB [Concomitant]
     Route: 048
  3. FOLIC ACID [Concomitant]
     Route: 048
  4. METHOTREXATE [Concomitant]
     Route: 048
  5. ASPIRIN [Concomitant]
     Route: 048

REACTIONS (2)
  - ANTIBODY TEST POSITIVE [None]
  - CHRONIC INFANTILE NEUROLOGICAL CUTANEOUS AND ARTICULAR SYNDROME [None]
